FAERS Safety Report 7458831-X (Version None)
Quarter: 2011Q2

REPORT INFORMATION
  Report Type: 
  Country: None (occurrence: None)
  Receive Date: 20110504
  Receipt Date: 20110421
  Transmission Date: 20111010
  Serious: Yes (Other)
  Sender: FDA-Public Use
  Company Number: DE-ROCHE-774347

PATIENT
  Sex: Female

DRUGS (1)
  1. LARIAM [Suspect]
     Indication: MALARIA PROPHYLAXIS
     Dosage: TAKEN FOR MANY YEARS FOR TIME PERIODS OF 6-12 WEEKS
     Route: 048

REACTIONS (4)
  - HYPOAESTHESIA FACIAL [None]
  - DRUG LEVEL INCREASED [None]
  - ABDOMINAL DISCOMFORT [None]
  - HYPOAESTHESIA [None]
